FAERS Safety Report 25443293 (Version 1)
Quarter: 2025Q2

REPORT INFORMATION
  Report Type: Spontaneous
  Country: US (occurrence: US)
  Receive Date: 20250617
  Receipt Date: 20250617
  Transmission Date: 20250716
  Serious: No
  Sender: TARO
  Company Number: US-TARO PHARMACEUTICALS USA INC.-2024TAR02112

PATIENT

DRUGS (2)
  1. CLOCORTOLONE PIVALATE [Suspect]
     Active Substance: CLOCORTOLONE PIVALATE
     Indication: Psoriasis
     Route: 061
     Dates: start: 20241014
  2. CLOCORTOLONE PIVALATE [Suspect]
     Active Substance: CLOCORTOLONE PIVALATE
     Indication: Eczema

REACTIONS (1)
  - Condition aggravated [Not Recovered/Not Resolved]

NARRATIVE: CASE EVENT DATE: 20241015
